FAERS Safety Report 8438527-8 (Version None)
Quarter: 2012Q2

REPORT INFORMATION
  Report Type: 
  Country: None (occurrence: None)
  Receive Date: 20120615
  Receipt Date: 20120605
  Transmission Date: 20120825
  Serious: No
  Sender: FDA-Public Use
  Company Number: US-BIOGENIDEC-2012BI019970

PATIENT
  Sex: Female

DRUGS (1)
  1. AVONEX [Suspect]
     Indication: MULTIPLE SCLEROSIS
     Route: 030
     Dates: start: 20110412

REACTIONS (7)
  - ARTHRALGIA [None]
  - FALL [None]
  - MENISCUS LESION [None]
  - GROIN PAIN [None]
  - OSTEOARTHRITIS [None]
  - BLADDER SPASM [None]
  - BLADDER PAIN [None]
